FAERS Safety Report 22605085 (Version 2)
Quarter: 2023Q2

REPORT INFORMATION
  Report Type: Spontaneous
  Country: US (occurrence: US)
  Receive Date: 20230615
  Receipt Date: 20230622
  Transmission Date: 20230721
  Serious: Yes (Other)
  Sender: FDA-Public Use
  Company Number: US-PFIZER INC-PV202300104746

PATIENT
  Age: 32 Year
  Sex: Female

DRUGS (2)
  1. EPINEPHRINE\LIDOCAINE HYDROCHLORIDE [Suspect]
     Active Substance: EPINEPHRINE\LIDOCAINE HYDROCHLORIDE
     Indication: Dental local anaesthesia
     Dosage: 1.7 ML OF LIDOCAINE WITH 1:100, 000 EPINEPHRINE
  2. BENZOCAINE [Concomitant]
     Active Substance: BENZOCAINE
     Dosage: UNK, TO THE RIGHT CHEEK
     Route: 061

REACTIONS (7)
  - Hypersensitivity [Unknown]
  - Urticaria [Unknown]
  - Pruritus [Unknown]
  - Hyperhidrosis [Unknown]
  - Tachycardia [Unknown]
  - Lip swelling [Unknown]
  - Swelling face [Unknown]
